FAERS Safety Report 6042895-4 (Version None)
Quarter: 2009Q1

REPORT INFORMATION
  Report Type: 
  Country: None (occurrence: None)
  Receive Date: 20090119
  Receipt Date: 20090112
  Transmission Date: 20090719
  Serious: Yes (Life-Threatening)
  Sender: FDA-Public Use
  Company Number: A0755405A

PATIENT
  Age: 40 Year
  Sex: Female
  Weight: 93.6 kg

DRUGS (6)
  1. ADVAIR DISKUS 100/50 [Suspect]
     Indication: ASTHMA
     Route: 055
     Dates: start: 20081001, end: 20081001
  2. VICODIN ES [Concomitant]
     Indication: PAIN
     Dosage: 75MG THREE TIMES PER DAY
     Dates: start: 20051229
  3. SOMA [Concomitant]
     Dosage: 350MG THREE TIMES PER DAY
  4. AMITRIPTYLINE HCL [Concomitant]
     Dosage: 25MG AT NIGHT
  5. PROAIR HFA [Concomitant]
  6. ZANTAC [Concomitant]
     Dosage: 150MG TWICE PER DAY

REACTIONS (3)
  - BRONCHOSPASM [None]
  - DYSPNOEA [None]
  - HYPERSENSITIVITY [None]
